FAERS Safety Report 7714834-9 (Version None)
Quarter: 2011Q3

REPORT INFORMATION
  Report Type: 
  Country: None (occurrence: None)
  Receive Date: 20110829
  Receipt Date: 20110820
  Transmission Date: 20111222
  Serious: Yes (Hospitalization, Other)
  Sender: FDA-Public Use
  Company Number: US-ASTELLAS-2011US003703

PATIENT
  Age: 80 Year
  Sex: Female
  Weight: 48 kg

DRUGS (5)
  1. ERLOTINIB HYDROCHLORIDE [Suspect]
     Indication: NON-SMALL CELL LUNG CANCER
     Dosage: 100 MG, UID/QD
     Route: 048
     Dates: start: 20110518, end: 20110705
  2. MK-2206 [Suspect]
     Dosage: UNK
     Route: 048
     Dates: start: 20110707
  3. MK-2206 [Suspect]
     Indication: NON-SMALL CELL LUNG CANCER
     Dosage: 30 MG, QOD
     Route: 048
     Dates: start: 20110518, end: 20110705
  4. ERLOTINIB HYDROCHLORIDE [Suspect]
     Dosage: UNK
     Route: 048
     Dates: start: 20110707
  5. GLUCOPHAGE [Suspect]
     Indication: PRODUCT USED FOR UNKNOWN INDICATION
     Dosage: UNK
     Route: 065

REACTIONS (12)
  - VOMITING [None]
  - HYPOALBUMINAEMIA [None]
  - BONE PAIN [None]
  - DECREASED APPETITE [None]
  - ASTHENIA [None]
  - WEIGHT DECREASED [None]
  - DYSPNOEA EXERTIONAL [None]
  - HYPOXIA [None]
  - NAUSEA [None]
  - FATIGUE [None]
  - DEHYDRATION [None]
  - DIARRHOEA [None]
